FAERS Safety Report 15979832 (Version 1)
Quarter: 2019Q1

REPORT INFORMATION
  Report Type: Spontaneous
  Country: GB (occurrence: GB)
  Receive Date: 20190219
  Receipt Date: 20190219
  Transmission Date: 20190418
  Serious: Yes (Other)
  Sender: FDA-Public Use
  Company Number: GB-ACCORD-107167

PATIENT
  Age: 28 Year
  Sex: Female
  Weight: 101.6 kg

DRUGS (1)
  1. SERTRALINE [Suspect]
     Active Substance: SERTRALINE HYDROCHLORIDE
     Indication: DEPRESSION SUICIDAL
     Dosage: 100 MILLIGRAM
     Route: 048
     Dates: start: 20170901

REACTIONS (4)
  - Vomiting [Unknown]
  - Bruxism [Not Recovered/Not Resolved]
  - Nausea [Not Recovered/Not Resolved]
  - Alcohol interaction [Unknown]

NARRATIVE: CASE EVENT DATE: 20171001
